FAERS Safety Report 14442751 (Version 1)
Quarter: 2018Q1

REPORT INFORMATION
  Report Type: Spontaneous
  Country: US (occurrence: US)
  Receive Date: 20180125
  Receipt Date: 20180125
  Transmission Date: 20180509
  Serious: No
  Sender: FDA-Public Use
  Company Number: US-ABBVIE-17K-163-2009799-00

PATIENT
  Age: 48 Year

DRUGS (1)
  1. HUMIRA [Suspect]
     Active Substance: ADALIMUMAB
     Indication: COLITIS ULCERATIVE
     Route: 058

REACTIONS (6)
  - Stress [Unknown]
  - Pain [Unknown]
  - Dry eye [Unknown]
  - Fatigue [Unknown]
  - Malaise [Unknown]
  - Colitis ulcerative [Not Recovered/Not Resolved]
